FAERS Safety Report 9628601 (Version 1)
Quarter: 2013Q4

REPORT INFORMATION
  Report Type: Report from Study
  Country: IL (occurrence: IL)
  Receive Date: 20131017
  Receipt Date: 20131017
  Transmission Date: 20140711
  Serious: Yes (Other)
  Sender: FDA-Public Use
  Company Number: PHHY2013IL115426

PATIENT
  Age: 60 Year
  Sex: Male

DRUGS (2)
  1. SANDOSTATIN LAR [Suspect]
     Indication: CARCINOID TUMOUR
     Dosage: UNK UKN, 1 Q4 W
     Dates: start: 20070710
  2. SANDOSTATIN LAR [Suspect]
     Dosage: UNK UKN, 1 Q4 W
     Dates: start: 20130912

REACTIONS (1)
  - Colon cancer [Unknown]
